FAERS Safety Report 5283091-8 (Version None)
Quarter: 2007Q2

REPORT INFORMATION
  Report Type: 
  Country: None (occurrence: None)
  Receive Date: 20070402
  Receipt Date: 20070327
  Transmission Date: 20071010
  Serious: Yes (Death)
  Sender: FDA-Public Use
  Company Number: JP-AVENTIS-200710477JP

PATIENT
  Age: 41 Year
  Sex: Male
  Weight: 42 kg

DRUGS (11)
  1. TAXOTERE [Suspect]
     Dosage: DOSE: 70MG/BODY
     Route: 041
     Dates: start: 20070208, end: 20070208
  2. PACLITAXEL [Concomitant]
  3. CARBOPLATIN [Concomitant]
  4. MORPHES [Concomitant]
     Route: 048
     Dates: start: 20070201, end: 20070221
  5. DEPAS [Concomitant]
     Indication: INSOMNIA
     Route: 048
     Dates: start: 20070201, end: 20070221
  6. PREDONINE                          /00016201/ [Concomitant]
     Indication: LYMPHANGIOSIS CARCINOMATOSA
     Route: 048
     Dates: start: 20070206, end: 20070213
  7. OMEPRAL [Concomitant]
     Route: 048
     Dates: end: 20070220
  8. SOL MEDROL [Concomitant]
     Indication: LYMPHANGIOSIS CARCINOMATOSA
     Route: 041
     Dates: start: 20070130, end: 20070201
  9. SOL MEDROL [Concomitant]
     Route: 041
     Dates: start: 20070202, end: 20070205
  10. SOL MEDROL [Concomitant]
     Route: 041
     Dates: start: 20070214, end: 20070219
  11. SOL MEDROL [Concomitant]
     Route: 041
     Dates: start: 20070220, end: 20070221

REACTIONS (2)
  - DISEASE PROGRESSION [None]
  - HAEMOLYTIC ANAEMIA [None]
